FAERS Safety Report 14782094 (Version 1)
Quarter: 2018Q2

REPORT INFORMATION
  Report Type: Report from Study
  Country: US (occurrence: US)
  Receive Date: 20180420
  Receipt Date: 20180420
  Transmission Date: 20180711
  Serious: Yes (Death)
  Sender: FDA-Public Use
  Company Number: US-ROCHE-1905146

PATIENT
  Age: 68 Year
  Sex: Male
  Weight: 102.3 kg

DRUGS (8)
  1. LANTUS [Concomitant]
     Active Substance: INSULIN GLARGINE
  2. GABAPENTIN. [Concomitant]
     Active Substance: GABAPENTIN
  3. PLAVIX [Concomitant]
     Active Substance: CLOPIDOGREL BISULFATE
  4. TRAMADOL. [Concomitant]
     Active Substance: TRAMADOL
  5. TRAJENTA [Concomitant]
     Active Substance: LINAGLIPTIN
  6. DIOVAN [Concomitant]
     Active Substance: VALSARTAN
  7. RANIBIZUMAB. [Suspect]
     Active Substance: RANIBIZUMAB
     Indication: DIABETIC RETINAL OEDEMA
     Dosage: PRN
     Route: 050
     Dates: start: 20140409, end: 20170209
  8. NEXIUM [Concomitant]
     Active Substance: ESOMEPRAZOLE MAGNESIUM

REACTIONS (1)
  - Myocardial infarction [Fatal]

NARRATIVE: CASE EVENT DATE: 20170304
